FAERS Safety Report 21997899 (Version 1)
Quarter: 2023Q1

REPORT INFORMATION
  Report Type: Spontaneous
  Country: DE (occurrence: DE)
  Receive Date: 20230216
  Receipt Date: 20230216
  Transmission Date: 20230418
  Serious: Yes (Other)
  Sender: FDA-Public Use
  Company Number: None

PATIENT

DRUGS (20)
  1. TAFASITAMAB [Suspect]
     Active Substance: TAFASITAMAB
     Indication: Diffuse large B-cell lymphoma
     Dosage: UNK
     Route: 065
     Dates: start: 20220501, end: 20220615
  2. LENALIDOMIDE [Suspect]
     Active Substance: LENALIDOMIDE
     Indication: Diffuse large B-cell lymphoma
     Dosage: UNK
     Route: 065
     Dates: start: 20220501, end: 20220615
  3. CYCLOPHOSPHAMIDE [Suspect]
     Active Substance: CYCLOPHOSPHAMIDE
     Indication: Diffuse large B-cell lymphoma
     Dosage: UNK
     Route: 065
     Dates: start: 20201201, end: 20210401
  4. DOXORUBICIN [Suspect]
     Active Substance: DOXORUBICIN
     Indication: Diffuse large B-cell lymphoma
     Dosage: UNK
     Route: 065
     Dates: start: 20201201, end: 20210401
  5. VINCRISTINE [Suspect]
     Active Substance: VINCRISTINE
     Indication: Diffuse large B-cell lymphoma
     Dosage: UNK
     Route: 065
     Dates: start: 20201201, end: 20210401
  6. RITUXIMAB [Suspect]
     Active Substance: RITUXIMAB
     Indication: Diffuse large B-cell lymphoma
     Dosage: R-DHAP
     Route: 065
     Dates: start: 20210601, end: 20210801
  7. RITUXIMAB [Suspect]
     Active Substance: RITUXIMAB
     Dosage: RITUXIMAB-POLATUZUMAB-BENDAMUSTINE
     Route: 065
     Dates: start: 20210901, end: 20211001
  8. RITUXIMAB [Suspect]
     Active Substance: RITUXIMAB
     Dosage: R-CHOP
     Route: 065
     Dates: start: 20201201, end: 20210401
  9. RITUXIMAB [Suspect]
     Active Substance: RITUXIMAB
     Dosage: R-ICE
     Route: 065
     Dates: start: 20220801, end: 20221027
  10. CISPLATIN [Suspect]
     Active Substance: CISPLATIN
     Indication: Diffuse large B-cell lymphoma
     Dosage: R-DHAP
     Route: 065
     Dates: start: 20210601, end: 20210801
  11. CARBOPLATIN [Suspect]
     Active Substance: CARBOPLATIN
     Indication: Diffuse large B-cell lymphoma
     Dosage: R-ICE
     Route: 042
     Dates: start: 20220801, end: 20221027
  12. PREDNISOLONE [Suspect]
     Active Substance: PREDNISOLONE
     Indication: Diffuse large B-cell lymphoma
     Dosage: UNK
     Route: 065
     Dates: start: 20201201, end: 20210401
  13. POLIVY [Suspect]
     Active Substance: POLATUZUMAB VEDOTIN-PIIQ
     Indication: Diffuse large B-cell lymphoma
     Dosage: RITUXIMAB-POLATUZUMAB-BENDAMUSTINE
     Route: 065
     Dates: start: 20210901, end: 20211001
  14. FLUDARABINE PHOSPHATE [Suspect]
     Active Substance: FLUDARABINE PHOSPHATE
     Indication: Diffuse large B-cell lymphoma
     Dosage: TREOSULFAN/FLUDARABIN
     Route: 065
     Dates: start: 202211, end: 202211
  15. TREOSULFAN [Suspect]
     Active Substance: TREOSULFAN
     Indication: Diffuse large B-cell lymphoma
     Dosage: TREOSULFAN/FLUDARABIN
     Route: 065
     Dates: start: 202211, end: 202211
  16. CYTARABINE [Suspect]
     Active Substance: CYTARABINE
     Indication: Diffuse large B-cell lymphoma
     Dosage: R-DHAP
     Route: 065
     Dates: start: 20210601, end: 20210801
  17. DEXAMETHASONE [Suspect]
     Active Substance: DEXAMETHASONE
     Indication: Diffuse large B-cell lymphoma
     Dosage: R-DHAP
     Route: 065
     Dates: start: 20210601, end: 20210801
  18. IFOSFAMIDE [Suspect]
     Active Substance: IFOSFAMIDE
     Indication: Diffuse large B-cell lymphoma
     Dosage: R-ICE
     Dates: start: 20220801, end: 20221027
  19. BENDAMUSTINE [Suspect]
     Active Substance: BENDAMUSTINE
     Indication: Diffuse large B-cell lymphoma
     Dosage: RITUXIMAB-POLATUZUMAB-BENDAMUSTINE
     Route: 065
     Dates: start: 20210901, end: 20211001
  20. ETOPOSIDE [Suspect]
     Active Substance: ETOPOSIDE
     Indication: Diffuse large B-cell lymphoma
     Dosage: R-ICE
     Route: 065
     Dates: start: 20220801, end: 20221027

REACTIONS (1)
  - Lymphoma [Not Recovered/Not Resolved]
